FAERS Safety Report 15969126 (Version 1)
Quarter: 2019Q1

REPORT INFORMATION
  Report Type: Spontaneous
  Country: US (occurrence: US)
  Receive Date: 20190215
  Receipt Date: 20190215
  Transmission Date: 20190418
  Serious: No
  Sender: FDA-Public Use
  Company Number: US-TEIKOKU PHARMA USA-TPU2019-00092

PATIENT
  Sex: Female
  Weight: 86.26 kg

DRUGS (6)
  1. LIDOCAINE PATCH [Suspect]
     Active Substance: LIDOCAINE
     Indication: PAIN
     Dates: start: 2018
  2. CARBI/LEVODOPA [Concomitant]
     Indication: PARKINSON^S DISEASE
     Dosage: 25/100MG
  3. ABILIFY [Concomitant]
     Active Substance: ARIPIPRAZOLE
  4. AMBIEN [Concomitant]
     Active Substance: ZOLPIDEM TARTRATE
     Indication: INSOMNIA
  5. LYRICA [Concomitant]
     Active Substance: PREGABALIN
     Indication: FIBROMYALGIA
  6. OXYBUTYNIN. [Concomitant]
     Active Substance: OXYBUTYNIN CHLORIDE
     Indication: URINARY INCONTINENCE

REACTIONS (2)
  - Memory impairment [Not Recovered/Not Resolved]
  - Tremor [Unknown]
